FAERS Safety Report 20010078 (Version 1)
Quarter: 2021Q4

REPORT INFORMATION
  Report Type: Spontaneous
  Country: US (occurrence: US)
  Receive Date: 20211029
  Receipt Date: 20211029
  Transmission Date: 20220303
  Serious: Yes (Hospitalization)
  Sender: FDA-Public Use
  Company Number: None

PATIENT
  Age: 86 Year
  Sex: Male

DRUGS (3)
  1. NUPLAZID [Suspect]
     Active Substance: PIMAVANSERIN TARTRATE
     Indication: Parkinson^s disease psychosis
     Route: 048
     Dates: start: 20210801, end: 20210809
  2. Caridopa/Levadopa 25mg/100mg [Concomitant]
  3. Rasagiline 1mg daily [Concomitant]

REACTIONS (2)
  - Condition aggravated [None]
  - Abnormal behaviour [None]

NARRATIVE: CASE EVENT DATE: 20211009
